FAERS Safety Report 25892597 (Version 2)
Quarter: 2025Q4

REPORT INFORMATION
  Report Type: Spontaneous
  Country: JP (occurrence: JP)
  Receive Date: 20251007
  Receipt Date: 20251023
  Transmission Date: 20260117
  Serious: No
  Sender: GALDERMA
  Company Number: JP-GALDERMA-JP2025019435

PATIENT

DRUGS (2)
  1. NEMOLIZUMAB [Suspect]
     Active Substance: NEMOLIZUMAB
     Indication: Dermatitis atopic
     Dosage: 30 MILLIGRAM / 4 WEEKS
     Route: 058
     Dates: start: 20250701, end: 20250701
  2. NEMOLIZUMAB [Suspect]
     Active Substance: NEMOLIZUMAB
     Dosage: 30 MILLIGRAM / 4 WEEKS
     Route: 058
     Dates: start: 2025

REACTIONS (1)
  - Drug eruption [Recovered/Resolved]

NARRATIVE: CASE EVENT DATE: 20250101
